FAERS Safety Report 19269401 (Version 2)
Quarter: 2021Q3

REPORT INFORMATION
  Report Type: Spontaneous
  Country: CA (occurrence: CA)
  Receive Date: 20210517
  Receipt Date: 20210720
  Transmission Date: 20211014
  Serious: Yes (Other)
  Sender: FDA-Public Use
  Company Number: CA-BEH-2021131725

PATIENT
  Sex: Male

DRUGS (1)
  1. ALBUREX [Suspect]
     Active Substance: ALBUMIN HUMAN
     Indication: HEPATIC FAILURE
     Dosage: 50 MILLILITER, SINGLE
     Route: 042
     Dates: start: 20200904, end: 20200904

REACTIONS (5)
  - Febrile nonhaemolytic transfusion reaction [Recovered/Resolved]
  - Escherichia test positive [Recovered/Resolved]
  - Body temperature increased [Recovered/Resolved]
  - Chills [Recovered/Resolved]
  - Dyspnoea [Recovered/Resolved]

NARRATIVE: CASE EVENT DATE: 20200904
